FAERS Safety Report 9425874 (Version 2)
Quarter: 2013Q3

REPORT INFORMATION
  Report Type: Spontaneous
  Country: US (occurrence: US)
  Receive Date: 20130729
  Receipt Date: 20130816
  Transmission Date: 20140515
  Serious: Yes (Hospitalization)
  Sender: FDA-Public Use
  Company Number: US-009507513-1307USA014473

PATIENT
  Sex: Male
  Weight: 72.11 kg

DRUGS (10)
  1. MIRALAX [Suspect]
     Indication: PRODUCT USED FOR UNKNOWN INDICATION
     Dosage: 17 G, UNK
     Route: 048
  2. DIAZEPAM [Concomitant]
     Indication: ANXIETY DISORDER
     Route: 048
  3. CITALOPRAM [Concomitant]
     Indication: DEPRESSION
     Dosage: 10 MG, UNK
     Route: 048
  4. CARBATROL [Concomitant]
     Indication: EPILEPSY
     Dosage: 1400 MG, UNK
     Route: 048
  5. LOVAZA [Concomitant]
     Indication: ROUTINE HEALTH MAINTENANCE
     Dosage: 1 G, BID
     Route: 048
  6. DIVALPROEX SODIUM [Concomitant]
     Indication: EPILEPSY
     Dosage: 1000 MG, UNK
     Route: 048
  7. DIVALPROEX SODIUM [Concomitant]
     Indication: BIPOLAR DISORDER
  8. NEXIUM [Concomitant]
     Indication: GASTROOESOPHAGEAL REFLUX DISEASE
     Route: 048
  9. LISINOPRIL [Concomitant]
     Indication: HYPERTENSION
     Dosage: 10 MG, UNK
     Route: 048
  10. CYCLOBENZAPRINE HYDROCHLORIDE [Concomitant]
     Indication: DEPRESSION
     Dosage: 10 MG, UNK
     Route: 048

REACTIONS (3)
  - Hyponatraemia [Unknown]
  - Hypotension [Unknown]
  - Drug ineffective [Unknown]
